FAERS Safety Report 7449137-3 (Version None)
Quarter: 2011Q2

REPORT INFORMATION
  Report Type: 
  Country: None (occurrence: None)
  Receive Date: 20110502
  Receipt Date: 20110421
  Transmission Date: 20111010
  Serious: Yes (Hospitalization, Disabling)
  Sender: FDA-Public Use
  Company Number: DE-BIOGENIDEC-2008BI019532

PATIENT
  Age: 52 Year
  Sex: Male
  Weight: 80 kg

DRUGS (5)
  1. ISCOVER [Concomitant]
  2. RANITIDINE [Concomitant]
  3. MAGNESIUM [Concomitant]
  4. TYSABRI [Suspect]
     Indication: RELAPSING-REMITTING MULTIPLE SCLEROSIS
     Route: 042
     Dates: start: 20070522, end: 20080606
  5. CORTISONE [Concomitant]
     Dates: end: 20080606

REACTIONS (4)
  - MULTIPLE SCLEROSIS RELAPSE [None]
  - PROGRESSIVE MULTIFOCAL LEUKOENCEPHALOPATHY [None]
  - BACK PAIN [None]
  - IMMUNE RECONSTITUTION SYNDROME [None]
